FAERS Safety Report 11626377 (Version 1)
Quarter: 2015Q4

REPORT INFORMATION
  Report Type: Spontaneous
  Country: US (occurrence: US)
  Receive Date: 20151013
  Receipt Date: 20151013
  Transmission Date: 20160304
  Serious: No
  Sender: FDA-Public Use
  Company Number: US-ROCHE-1561973

PATIENT
  Sex: Female

DRUGS (2)
  1. KADCYLA [Suspect]
     Active Substance: ADO-TRASTUZUMAB EMTANSINE
     Indication: BREAST CANCER METASTATIC
     Dosage: GOT INFUSION EVERY THREE WEEKS
     Route: 065
     Dates: start: 20150316, end: 20150629
  2. BOTOX [Concomitant]
     Active Substance: ONABOTULINUMTOXINA
     Route: 065

REACTIONS (4)
  - Weight fluctuation [Not Recovered/Not Resolved]
  - Pain [Unknown]
  - Alopecia [Recovered/Resolved]
  - Peripheral swelling [Unknown]
